FAERS Safety Report 4834687-6 (Version None)
Quarter: 2005Q4

REPORT INFORMATION
  Report Type: 
  Country: None (occurrence: None)
  Receive Date: 20051122
  Receipt Date: 20051118
  Transmission Date: 20060501
  Serious: Yes (Hospitalization)
  Sender: FDA-Public Use
  Company Number: 424608

PATIENT
  Age: 80 Year
  Sex: Female

DRUGS (3)
  1. DILATREND [Suspect]
     Indication: ARRHYTHMIA
     Dosage: 25MG PER DAY
     Route: 048
     Dates: start: 20050515, end: 20051110
  2. LOSEC [Concomitant]
  3. MAALOX FAST BLOCKER [Concomitant]

REACTIONS (2)
  - ANGIONEUROTIC OEDEMA [None]
  - URTICARIA [None]
